FAERS Safety Report 6889840-7 (Version None)
Quarter: 2010Q3

REPORT INFORMATION
  Report Type: 
  Country: None (occurrence: None)
  Receive Date: 20100730
  Receipt Date: 20080527
  Transmission Date: 20110219
  Serious: No
  Sender: FDA-Public Use
  Company Number: US-PFIZER INC-2008028020

PATIENT
  Sex: Male

DRUGS (5)
  1. LIPITOR [Suspect]
     Indication: CORONARY ARTERY DISEASE
     Route: 048
     Dates: start: 20070701
  2. LIPITOR [Suspect]
     Indication: HYPERLIPIDAEMIA
  3. ACETYLSALICYLIC ACID SRT [Concomitant]
  4. TOPROL-XL [Concomitant]
  5. ALTACE [Concomitant]

REACTIONS (2)
  - HAEMATURIA [None]
  - MEMORY IMPAIRMENT [None]
